FAERS Safety Report 8817812 (Version 3)
Quarter: 2013Q1

REPORT INFORMATION
  Report Type: Report from Study
  Country: JP (occurrence: JP)
  Receive Date: 20121001
  Receipt Date: 20130128
  Transmission Date: 20140127
  Serious: Yes (Other)
  Sender: FDA-Public Use
  Company Number: JP-009507513-1209JPN011668

PATIENT
  Age: 60 Year
  Sex: Female
  Weight: 60 kg

DRUGS (20)
  1. PEGINTRON [Suspect]
     Indication: CHRONIC HEPATITIS C
     Dosage: 0.7 MICROGRAM PER KILOGRAM, QW
     Route: 058
     Dates: start: 20120710, end: 20120723
  2. PEGINTRON [Suspect]
     Dosage: 0.5 MICROGRAM PER KILOGRAM, QW
     Route: 058
     Dates: start: 20120730, end: 20120820
  3. PEGINTRON [Suspect]
     Dosage: 0.5 MICROGRAM PER KILOGRAM, QW
     Route: 058
     Dates: start: 20120903, end: 20120917
  4. PEGINTRON [Suspect]
     Dosage: 0.5 MICROGRAM PER KILOGRAM, QW
     Route: 058
     Dates: start: 20121001
  5. PEGINTRON [Suspect]
     Dosage: 0.5 MICROGRAM PER KILOGRAM,QW
     Route: 058
     Dates: start: 20121009, end: 20121015
  6. PEGINTRON [Suspect]
     Dosage: 0.4MICROGRAM PER KILOGRAM,QW
     Route: 058
     Dates: start: 20121022, end: 20121022
  7. PEGINTRON [Suspect]
     Dosage: 0.5 MICROGRAM PER KILOGRAM,QW
     Route: 058
     Dates: start: 20121029, end: 20121112
  8. PEGINTRON [Suspect]
     Dosage: 0.3 MICROGRAM PER KILOGRAM,QW
     Route: 058
     Dates: start: 20121119, end: 20121219
  9. REBETOL [Suspect]
     Indication: CHRONIC HEPATITIS C
     Dosage: 600 MG, QD
     Route: 048
     Dates: start: 20120710, end: 20120729
  10. REBETOL [Suspect]
     Dosage: 200 MG, QD
     Route: 048
     Dates: start: 20120730, end: 20120812
  11. REBETOL [Suspect]
     Dosage: 400 MG, QD
     Route: 048
     Dates: start: 20120813
  12. REBETOL [Suspect]
     Dosage: 200 UNK, UNK
     Route: 048
     Dates: end: 20121028
  13. REBETOL [Suspect]
     Dosage: 400 UNK, UNK
     Route: 048
     Dates: start: 20121029, end: 20121224
  14. TELAVIC [Suspect]
     Indication: CHRONIC HEPATITIS C
     Dosage: 1500 MG, QD
     Route: 048
     Dates: start: 20120710, end: 20120826
  15. TELAVIC [Suspect]
     Dosage: 1000MG, QD
     Route: 048
     Dates: start: 20120827, end: 20121001
  16. CLARITIN REDITABS [Concomitant]
     Indication: PROPHYLAXIS
     Dosage: 10 MG, QD FORMULATIO:POR
     Route: 048
  17. EPADEL [Concomitant]
     Indication: HYPERLIPIDAEMIA
     Dosage: 1800 MG, QD FORMULATIO:POR
     Route: 048
  18. FEROTYM [Concomitant]
     Indication: IRON DEFICIENCY ANAEMIA
     Dosage: 100 MG, QD, FORMULATIO:POR
     Route: 048
  19. ONEALFA [Concomitant]
     Indication: OSTEOPOROSIS
     Dosage: 0.5 MICROGRAM, QD FORMULATIO:POR
     Route: 048
  20. PARIET [Concomitant]
     Indication: GASTROOESOPHAGEAL REFLUX DISEASE
     Dosage: 10 MG, QD FORMULATIO:POR
     Route: 048

REACTIONS (5)
  - Anaemia [Not Recovered/Not Resolved]
  - Anaemia [Not Recovered/Not Resolved]
  - Anaemia [Not Recovered/Not Resolved]
  - Hyperuricaemia [Not Recovered/Not Resolved]
  - Renal disorder [Not Recovered/Not Resolved]
